FAERS Safety Report 13101544 (Version 2)
Quarter: 2017Q1

REPORT INFORMATION
  Report Type: Spontaneous
  Country: US (occurrence: US)
  Receive Date: 20170110
  Receipt Date: 20170224
  Transmission Date: 20170428
  Serious: Yes (Other)
  Sender: FDA-Public Use
  Company Number: US-009507513-1701USA003928

PATIENT
  Age: 8 Year
  Sex: Male

DRUGS (4)
  1. OMALIZUMAB [Concomitant]
     Active Substance: OMALIZUMAB
     Dosage: 300 MG, Q4WK
  2. NASONEX [Suspect]
     Active Substance: MOMETASONE FUROATE
     Indication: PRODUCT USED FOR UNKNOWN INDICATION
     Dosage: 50 ?G
     Route: 045
  3. SALMETEROL [Concomitant]
     Active Substance: SALMETEROL
     Dosage: 21 ?G, BID
     Route: 048
  4. FLUTICASONE PROPIONATE. [Suspect]
     Active Substance: FLUTICASONE PROPIONATE
     Dosage: 115 ?G, BID
     Route: 045

REACTIONS (2)
  - Growth retardation [Unknown]
  - Adrenal suppression [Recovered/Resolved]
